FAERS Safety Report 8477172-5 (Version None)
Quarter: 2012Q2

REPORT INFORMATION
  Report Type: 
  Country: None (occurrence: None)
  Receive Date: 20120625
  Receipt Date: 20120625
  Transmission Date: 20120825
  Serious: Yes (Hospitalization)
  Sender: FDA-Public Use
  Company Number: None

PATIENT
  Age: 58 Year
  Sex: Male
  Weight: 90.3 kg

DRUGS (5)
  1. CIPROFLOXACIN [Suspect]
     Indication: PROPHYLAXIS
     Dates: start: 20120608, end: 20120617
  2. CIPROFLOXACIN [Suspect]
     Indication: FEBRILE NEUTROPENIA
     Dates: start: 20120608, end: 20120617
  3. CIPROFLOXACIN [Suspect]
     Indication: PROPHYLAXIS
     Dates: start: 20120621, end: 20120621
  4. CIPROFLOXACIN [Suspect]
     Indication: FEBRILE NEUTROPENIA
     Dates: start: 20120621, end: 20120621
  5. PRIMAXIN [Concomitant]

REACTIONS (5)
  - PYREXIA [None]
  - ERYTHEMA MULTIFORME [None]
  - PANCYTOPENIA [None]
  - PRURITUS [None]
  - FORMICATION [None]
